FAERS Safety Report 9005560 (Version 1)
Quarter: 2013Q1

REPORT INFORMATION
  Report Type: Spontaneous
  Country: FR (occurrence: FR)
  Receive Date: 20130109
  Receipt Date: 20130109
  Transmission Date: 20140127
  Serious: Yes (Hospitalization)
  Sender: FDA-Public Use
  Company Number: FR-PFIZER INC-2013003302

PATIENT
  Age: 7 Year
  Sex: Female
  Weight: 32 kg

DRUGS (1)
  1. ZARONTIN [Suspect]
     Indication: PETIT MAL EPILEPSY
     Dosage: 500 MG, 2X/DAY
     Route: 048
     Dates: start: 20120818, end: 20121106

REACTIONS (1)
  - Hallucination, visual [Recovered/Resolved]
